FAERS Safety Report 5201368-9 (Version None)
Quarter: 2006Q4

REPORT INFORMATION
  Report Type: 
  Country: None (occurrence: None)
  Receive Date: 20061016
  Receipt Date: 20050919
  Transmission Date: 20070319
  Serious: Yes (Other)
  Sender: FDA-Public Use
  Company Number: 2005109673

PATIENT
  Age: 69 Year
  Sex: Male
  Weight: 108.8633 kg

DRUGS (4)
  1. NEURONTIN [Suspect]
     Indication: PAIN
     Dosage: 3600 MG (1200 MG, 3 IN 1 D), ORAL
     Route: 048
  2. ULTRAM [Suspect]
     Indication: ILL-DEFINED DISORDER
  3. HYDROCODONE BITARTRATE [Concomitant]
  4. ALL OTHER THERAPEUTIC PRODUCTS [Concomitant]

REACTIONS (4)
  - CONVULSION [None]
  - MANIA [None]
  - PAIN [None]
  - PSYCHOMOTOR HYPERACTIVITY [None]
